FAERS Safety Report 15201552 (Version 1)
Quarter: 2018Q4

REPORT INFORMATION
  Report Type: Spontaneous
  Country: IE (occurrence: IE)
  Receive Date: 20180726
  Receipt Date: 20180726
  Transmission Date: 20190204
  Serious: Yes (Other)
  Sender: FDA-Public Use
  Company Number: IE-TEVA-2018-IE-930390

PATIENT
  Age: 63 Year
  Sex: Male
  Weight: 97.7 kg

DRUGS (11)
  1. FLEBOGAMMA DIF [Suspect]
     Active Substance: HUMAN IMMUNOGLOBULIN G
     Indication: DYSTONIA
     Dosage: 100MG/ML (BOTTLE 1 AND BOTTLE 2)
     Route: 042
     Dates: start: 20180523
  2. MIRAPEXIN [Concomitant]
     Active Substance: PRAMIPEXOLE
  3. ATORVASTATIN (GENERIC) [Concomitant]
     Active Substance: ATORVASTATIN
     Indication: BLOOD CHOLESTEROL
  4. GABAPENTIN (GENERIC) [Suspect]
     Active Substance: GABAPENTIN
     Indication: ANALGESIC THERAPY
  5. PREDNISOLONE (GENERIC) [Concomitant]
  6. NOVORAPID [Concomitant]
     Active Substance: INSULIN ASPART
     Indication: BLOOD INSULIN
  7. FOSAMAX [Concomitant]
     Active Substance: ALENDRONATE SODIUM
  8. FLEBOGAMMA DIF [Suspect]
     Active Substance: HUMAN IMMUNOGLOBULIN G
     Indication: STIFF PERSON SYNDROME
     Dates: start: 201708
  9. LANSOPRAZOLE (GENERIC) [Concomitant]
     Active Substance: LANSOPRAZOLE
  10. CALCICHEW-D3 FORTE 500 MG/ 400 IU FILM COATED TABLET 500/10 -UNKNOWN- [Concomitant]
     Dosage: 1 TABLET
  11. METFORMIN (GENERIC) [Concomitant]
     Active Substance: METFORMIN HYDROCHLORIDE
     Indication: DIABETES MELLITUS

REACTIONS (4)
  - Headache [Recovered/Resolved]
  - Chills [Recovered/Resolved]
  - Pruritus [Recovered/Resolved]
  - Asthenia [Recovered/Resolved]

NARRATIVE: CASE EVENT DATE: 20180523
